FAERS Safety Report 23927096 (Version 1)
Quarter: 2024Q2

REPORT INFORMATION
  Report Type: Spontaneous
  Country: US (occurrence: None)
  Receive Date: 20240531
  Receipt Date: 20240531
  Transmission Date: 20240715
  Serious: Yes (Other)
  Sender: FDA-Public Use
  Company Number: 2024A121826

PATIENT

DRUGS (1)
  1. SYMBICORT [Suspect]
     Active Substance: BUDESONIDE\FORMOTEROL FUMARATE DIHYDRATE
     Dosage: UNKNOWN UNKNOWN
     Route: 055

REACTIONS (10)
  - Cataract [Unknown]
  - Fall [Unknown]
  - Muscle injury [Unknown]
  - Lung disorder [Unknown]
  - Hypotension [Unknown]
  - Product dose omission issue [Unknown]
  - Blood pressure increased [Unknown]
  - Femoral nerve injury [Unknown]
  - Stress [Unknown]
  - Pain [Unknown]
